FAERS Safety Report 9013021 (Version 1)
Quarter: 2013Q1

REPORT INFORMATION
  Report Type: Spontaneous
  Country: US (occurrence: US)
  Receive Date: 20130114
  Receipt Date: 20130114
  Transmission Date: 20140127
  Serious: Yes (Death)
  Sender: FDA-Public Use
  Company Number: US-ASTRAZENECA-2013SE02300

PATIENT
  Age: 203 Day
  Sex: Female

DRUGS (30)
  1. SYNAGIS [Suspect]
     Route: 030
     Dates: start: 20121105
  2. SYNAGIS [Suspect]
     Route: 030
     Dates: start: 20121203
  3. PREMETHRI CREAM [Concomitant]
  4. AQUAMEPHYTON [Concomitant]
     Dates: start: 20120610
  5. ERYTHROMYCIN [Concomitant]
     Dates: start: 20120610
  6. EYE OINTMENT [Concomitant]
  7. AMPICILLIN [Concomitant]
     Dates: start: 20120610
  8. GENTAMICIN [Concomitant]
     Dates: start: 20120610
  9. MIDAZOLAM [Concomitant]
     Dates: start: 20120610
  10. SUCROSE [Concomitant]
     Dates: start: 20120610
  11. RESPIRATORY SUPPORT VENTILATOR [Concomitant]
     Dates: start: 20120610, end: 20120610
  12. IV FLUIDS [Concomitant]
  13. PROTEIN SOLUTION [Concomitant]
     Dosage: 100ML/KG/DAY
  14. D10W [Concomitant]
  15. BLOOD SUGAR [Concomitant]
     Dosage: TWICE HOURLY
  16. BLOOD SUGAR [Concomitant]
     Dosage: EIGHT HOURLY
  17. BLOOD SUGAR [Concomitant]
     Dosage: AS REQUIRED
  18. ELECTROLYTES [Concomitant]
     Dosage: AS REQUIRED, FIRST DOSE AT 12 NOON
     Dates: start: 20120610
  19. BLOOD GASES [Concomitant]
  20. MULTIVITAMINS WITH IRON [Concomitant]
     Dates: start: 20120630
  21. BREAST MILK PREM [Concomitant]
     Dosage: 24 CAL/OZ
  22. NASAL CPAP [Concomitant]
     Dates: start: 20120610, end: 20120610
  23. NASAL CPAP [Concomitant]
     Dates: start: 20120613, end: 20120618
  24. NASAL CPAP [Concomitant]
     Dates: start: 20120622, end: 20120626
  25. NASAL CPAP [Concomitant]
     Dates: start: 20120626, end: 20120701
  26. ROOM AIR [Concomitant]
     Dates: start: 20120618, end: 20120620
  27. ROOM AIR [Concomitant]
     Dates: start: 20120626, end: 20120626
  28. ROOM AIR [Concomitant]
     Dates: start: 20120701
  29. GLYCERIN SUPPOSITORY [Concomitant]
     Dates: start: 20120610
  30. CAFFEINE CITRATE [Concomitant]
     Dates: start: 20120619

REACTIONS (1)
  - Asphyxia [Fatal]
